FAERS Safety Report 11030949 (Version 1)
Quarter: 2015Q2

REPORT INFORMATION
  Report Type: Spontaneous
  Country: US (occurrence: None)
  Receive Date: 20150414
  Receipt Date: 20150414
  Transmission Date: 20150821
  Serious: Yes (Other)
  Sender: FDA-Public Use
  Company Number: None

PATIENT
  Age: 34 Year
  Sex: Male
  Weight: 71.4 kg

DRUGS (6)
  1. CUBICIN [Suspect]
     Active Substance: DAPTOMYCIN
     Indication: CELLULITIS
     Route: 042
     Dates: start: 20150406, end: 20150407
  2. IBUPROFEN. [Concomitant]
     Active Substance: IBUPROFEN
  3. CUBICIN [Suspect]
     Active Substance: DAPTOMYCIN
     Route: 042
     Dates: start: 20150406, end: 20150407
  4. ACETAMINOPHEN. [Suspect]
     Active Substance: ACETAMINOPHEN
  5. ONDANSETRON [Concomitant]
     Active Substance: ONDANSETRON
  6. MORPHINE [Concomitant]
     Active Substance: MORPHINE

REACTIONS (1)
  - Rash [None]

NARRATIVE: CASE EVENT DATE: 20150406
